FAERS Safety Report 8370084-7 (Version None)
Quarter: 2012Q2

REPORT INFORMATION
  Report Type: 
  Country: None (occurrence: None)
  Receive Date: 20120518
  Receipt Date: 20120508
  Transmission Date: 20120825
  Serious: Yes (Other)
  Sender: FDA-Public Use
  Company Number: DE-JNJFOC-20120512301

PATIENT

DRUGS (11)
  1. DOXORUBICIN HCL [Suspect]
     Dosage: CYCLE 3
     Route: 042
  2. DEXAMETHASONE [Concomitant]
     Indication: PROPHYLAXIS OF NAUSEA AND VOMITING
     Route: 065
  3. IFOSFAMIDE [Suspect]
     Dosage: CYCLE 1
     Route: 042
  4. GRANISETRON [Concomitant]
     Indication: PROPHYLAXIS OF NAUSEA AND VOMITING
     Route: 065
  5. DOXORUBICIN HCL [Suspect]
     Indication: SARCOMA
     Dosage: CYCLE 4
     Route: 042
  6. RADIOTHERAPY [Suspect]
     Indication: SARCOMA
     Dosage: RADIATION FIELD REDUCED TO INITIAL TUMOR BED AND BOOST APPLIED TO CUMULATIVE DOSE OF 60 GY
     Route: 050
  7. IFOSFAMIDE [Suspect]
     Dosage: CYCLE 2
     Route: 042
  8. DOXORUBICIN HCL [Suspect]
     Dosage: CYCLE 1
     Route: 042
  9. DOXORUBICIN HCL [Suspect]
     Dosage: CYCLE 2
     Route: 042
  10. IFOSFAMIDE [Suspect]
     Indication: SARCOMA
     Dosage: CYCLE 4
     Route: 042
  11. IFOSFAMIDE [Suspect]
     Dosage: CYCLE 3
     Route: 042

REACTIONS (2)
  - GASTRIC CANCER [None]
  - OFF LABEL USE [None]
